FAERS Safety Report 6368709-0 (Version None)
Quarter: 2009Q3

REPORT INFORMATION
  Report Type: 
  Country: None (occurrence: None)
  Receive Date: 20090917
  Receipt Date: 20090917
  Transmission Date: 20100115
  Serious: Yes (Disabling)
  Sender: FDA-Public Use
  Company Number: None

PATIENT
  Age: 38 Year
  Sex: Male

DRUGS (1)
  1. AMPICILLIN [Suspect]

REACTIONS (3)
  - HERPES ZOSTER [None]
  - PANCYTOPENIA [None]
  - RASH MACULO-PAPULAR [None]
